FAERS Safety Report 12640442 (Version 1)
Quarter: 2016Q3

REPORT INFORMATION
  Report Type: Spontaneous
  Country: US (occurrence: None)
  Receive Date: 20160806
  Receipt Date: 20160806
  Transmission Date: 20161109
  Serious: No
  Sender: FDA-Public Use
  Company Number: UNT-2016-010299

PATIENT
  Age: 72 Year
  Sex: Male
  Weight: 74.4 kg

DRUGS (3)
  1. TYVASO [Suspect]
     Active Substance: TREPROSTINIL
     Indication: PULMONARY ARTERIAL HYPERTENSION
     Dosage: 18-54 MICROGRAMS, QID, INHALATION
     Route: 055
     Dates: start: 20160129
  2. ADCIRCA [Concomitant]
     Active Substance: TADALAFIL
  3. LETAIRIS [Concomitant]
     Active Substance: AMBRISENTAN

REACTIONS (4)
  - Device malfunction [None]
  - Nasal congestion [None]
  - Headache [None]
  - Incorrect dose administered by device [None]
